FAERS Safety Report 15334412 (Version 1)
Quarter: 2018Q3

REPORT INFORMATION
  Report Type: Spontaneous
  Country: US (occurrence: US)
  Receive Date: 20180827
  Receipt Date: 20180827
  Transmission Date: 20181010
  Serious: Yes (Death, Hospitalization)
  Sender: FDA-Public Use
  Company Number: None

PATIENT
  Age: 58 Year
  Sex: Male
  Weight: 92.25 kg

DRUGS (1)
  1. LYNPARZA [Suspect]
     Active Substance: OLAPARIB
     Indication: PROSTATE CANCER METASTATIC
     Route: 048

REACTIONS (5)
  - Small cell carcinoma [None]
  - Product use in unapproved indication [None]
  - Prostatic specific antigen increased [None]
  - Acute myeloid leukaemia [None]
  - Product use issue [None]

NARRATIVE: CASE EVENT DATE: 20171001
